FAERS Safety Report 15643093 (Version 4)
Quarter: 2019Q4

REPORT INFORMATION
  Report Type: Spontaneous
  Country: CA (occurrence: CA)
  Receive Date: 20181121
  Receipt Date: 20191127
  Transmission Date: 20200122
  Serious: Yes (Other)
  Sender: FDA-Public Use
  Company Number: CA-CELLTRION INC.-2017CA017453

PATIENT

DRUGS (12)
  1. INFLECTRA [Suspect]
     Active Substance: INFLIXIMAB-DYYB
     Dosage: 300 MG ON 0, 2, 6 WEEKS THEN EVERY 8 WEEKS THEREAFTER
     Route: 042
     Dates: start: 20171128, end: 20171128
  2. PURINETHOL [Concomitant]
     Active Substance: MERCAPTOPURINE
     Dosage: 75 MG, 1X/DAY
     Route: 065
     Dates: start: 201512, end: 201902
  3. MERCAPTOPURINE. [Concomitant]
     Active Substance: MERCAPTOPURINE
     Dosage: 50 MG 1(1/2), DAILY
     Route: 048
  4. INFLECTRA [Suspect]
     Active Substance: INFLIXIMAB-DYYB
     Dosage: 300 MG ON 0, 2, 6 WEEKS THEN EVERY 8 WEEKS THEREAFTER
     Route: 042
     Dates: start: 20180131, end: 20180131
  5. INFLECTRA [Suspect]
     Active Substance: INFLIXIMAB-DYYB
     Indication: CROHN^S DISEASE
     Dosage: 300 MG ON 0, 2, 6 WEEKS THEN EVERY 8 WEEKS THEREAFTER
     Route: 042
     Dates: start: 20170823, end: 20170823
  6. INFLECTRA [Suspect]
     Active Substance: INFLIXIMAB-DYYB
     Dosage: 300 MG ON 0, 2, 6 WEEKS THEN EVERY 8 WEEKS THEREAFTER
     Route: 042
     Dates: start: 20180528, end: 20180528
  7. INFLECTRA [Suspect]
     Active Substance: INFLIXIMAB-DYYB
     Dosage: 300 MG ON 0, 2, 6 WEEKS THEN EVERY 8 WEEKS THEREAFTER
     Route: 042
     Dates: start: 20190814, end: 20190814
  8. INFLECTRA [Suspect]
     Active Substance: INFLIXIMAB-DYYB
     Dosage: 300 MG ON 0, 2, 6 WEEKS THEN EVERY 8 WEEKS THEREAFTER
     Route: 042
     Dates: start: 20191009
  9. INFLECTRA [Suspect]
     Active Substance: INFLIXIMAB-DYYB
     Dosage: 300 MG ON 0, 2, 6 WEEKS THEN EVERY 8 WEEKS THEREAFTER
     Route: 042
     Dates: start: 20190228, end: 20190228
  10. INFLECTRA [Suspect]
     Active Substance: INFLIXIMAB-DYYB
     Dosage: 300 MG ON 0, 2, 6 WEEKS THEN EVERY 8 WEEKS THEREAFTER
     Route: 042
     Dates: start: 20180911, end: 20180911
  11. INFLECTRA [Suspect]
     Active Substance: INFLIXIMAB-DYYB
     Dosage: 300 MG ON 0, 2, 6 WEEKS THEN EVERY 8 WEEKS THEREAFTER
     Route: 042
     Dates: start: 20190619, end: 20190619
  12. INFLECTRA [Suspect]
     Active Substance: INFLIXIMAB-DYYB
     Dosage: 300 MG ON 0, 2, 6 WEEKS THEN EVERY 8 WEEKS THEREAFTER
     Route: 042
     Dates: start: 20180327, end: 20180327

REACTIONS (21)
  - Hypertension [Unknown]
  - Breast pain [Not Recovered/Not Resolved]
  - Ear pruritus [Unknown]
  - Dyspnoea [Unknown]
  - Fatigue [Not Recovered/Not Resolved]
  - Angina pectoris [Unknown]
  - Off label use [Unknown]
  - Poor venous access [Unknown]
  - Vascular procedure complication [Unknown]
  - Back pain [Not Recovered/Not Resolved]
  - Vision blurred [Unknown]
  - Productive cough [Not Recovered/Not Resolved]
  - Headache [Unknown]
  - Product use issue [Unknown]
  - Blood pressure fluctuation [Unknown]
  - Cough [Unknown]
  - Conjunctival hyperaemia [Unknown]
  - Bronchitis [Not Recovered/Not Resolved]
  - Haemoptysis [Not Recovered/Not Resolved]
  - Condition aggravated [Not Recovered/Not Resolved]
  - Rash macular [Unknown]

NARRATIVE: CASE EVENT DATE: 20171128
